FAERS Safety Report 25009166 (Version 2)
Quarter: 2025Q2

REPORT INFORMATION
  Report Type: Report from Study
  Country: CA (occurrence: CA)
  Receive Date: 20250225
  Receipt Date: 20250430
  Transmission Date: 20250717
  Serious: Yes (Other)
  Sender: SAMSUNG BIOEPIS
  Company Number: CA-SAMSUNG BIOEPIS-SB-2025-06195

PATIENT
  Age: 57 Year
  Sex: Female
  Weight: 55 kg

DRUGS (1)
  1. RENFLEXIS [Suspect]
     Active Substance: INFLIXIMAB-ABDA
     Indication: Colitis ulcerative
     Route: 042
     Dates: start: 20250211

REACTIONS (10)
  - Headache [Recovered/Resolved]
  - Back pain [Recovered/Resolved]
  - Colitis ulcerative [Unknown]
  - Hypertension [Recovered/Resolved]
  - Cough [Unknown]
  - Productive cough [Unknown]
  - Illness [Recovered/Resolved]
  - Impaired work ability [Unknown]
  - Off label use [Unknown]
  - Product substitution issue [Unknown]

NARRATIVE: CASE EVENT DATE: 20250211
